FAERS Safety Report 4852707-X (Version None)
Quarter: 2005Q4

REPORT INFORMATION
  Report Type: 
  Country: None (occurrence: None)
  Receive Date: 20051125
  Receipt Date: 20050411
  Transmission Date: 20060501
  Serious: Yes (Other)
  Sender: FDA-Public Use
  Company Number: 2005045335

PATIENT
  Sex: Male
  Weight: 70.3075 kg

DRUGS (7)
  1. TIKOSYN [Suspect]
     Indication: ATRIAL FIBRILLATION
     Dosage: 250 MCG (250 MCG, DAILY), ORAL
     Route: 048
     Dates: start: 20030101
  2. WARFARIN SODIUM [Concomitant]
  3. DIGOXIN [Concomitant]
  4. ASPIRIN [Concomitant]
  5. GARLIC [Concomitant]
  6. FISH OIL [Concomitant]
  7. GLUCOSAMINE SULFATE [Concomitant]

REACTIONS (2)
  - DRUG INEFFECTIVE [None]
  - DYSPNOEA [None]
